FAERS Safety Report 17718241 (Version 2)
Quarter: 2020Q2

REPORT INFORMATION
  Report Type: Spontaneous
  Country: US (occurrence: US)
  Receive Date: 20200428
  Receipt Date: 20200522
  Transmission Date: 20200714
  Serious: No
  Sender: FDA-Public Use
  Company Number: US-GLAXOSMITHKLINE-US2020AMR071497

PATIENT
  Sex: Female

DRUGS (2)
  1. ZEJULA [Suspect]
     Active Substance: NIRAPARIB
     Indication: OVARIAN CANCER
     Dosage: 200 MG, DAILY
     Dates: start: 20200306
  2. ZEJULA [Suspect]
     Active Substance: NIRAPARIB
     Dosage: 200 MG, QD
     Dates: start: 20200408

REACTIONS (8)
  - Hepatic enzyme increased [Unknown]
  - Blood pressure increased [Recovering/Resolving]
  - Peripheral swelling [Unknown]
  - Product dose omission [Unknown]
  - Skin lesion [Unknown]
  - Constipation [Unknown]
  - Heart rate increased [Unknown]
  - Social problem [Unknown]
